FAERS Safety Report 14840737 (Version 2)
Quarter: 2018Q2

REPORT INFORMATION
  Report Type: Spontaneous
  Country: US (occurrence: US)
  Receive Date: 20180503
  Receipt Date: 20180524
  Transmission Date: 20180711
  Serious: No
  Sender: FDA-Public Use
  Company Number: US-PFIZER INC-2018177937

PATIENT
  Age: 72 Year
  Sex: Male

DRUGS (1)
  1. METHOTREXATE SODIUM. [Suspect]
     Active Substance: METHOTREXATE SODIUM
     Indication: RHEUMATOID ARTHRITIS
     Dosage: 27.5 MG, WEEKLY
     Route: 058

REACTIONS (4)
  - Vomiting [Recovering/Resolving]
  - Drug intolerance [Unknown]
  - Drug effect incomplete [Unknown]
  - Nausea [Recovering/Resolving]
